FAERS Safety Report 4588165-2 (Version None)
Quarter: 2005Q1

REPORT INFORMATION
  Report Type: 
  Country: None (occurrence: None)
  Receive Date: 20050221
  Receipt Date: 20050113
  Transmission Date: 20050727
  Serious: Yes (Other)
  Sender: FDA-Public Use
  Company Number: US-GLAXOSMITHKLINE-A0542016A

PATIENT
  Sex: Female
  Weight: 2.5 kg

DRUGS (6)
  1. EPIVIR [Suspect]
     Indication: HIV INFECTION
     Dosage: 300MG PER DAY
     Dates: start: 20040720
  2. KALETRA [Concomitant]
     Indication: HIV INFECTION
     Dosage: 866MG PER DAY
     Dates: start: 20040720
  3. VIREAD [Concomitant]
     Indication: HIV INFECTION
     Dosage: 300MG PER DAY
     Dates: start: 20040720
  4. TRIMETHOPRIM-SULFAMETHOXAZOLE [Concomitant]
  5. DAPSONE [Concomitant]
  6. LABETALOL HCL [Concomitant]

REACTIONS (3)
  - CARDIAC MURMUR [None]
  - DRUG EXPOSURE DURING PREGNANCY [None]
  - MACROGLOSSIA [None]
